FAERS Safety Report 10662640 (Version 1)
Quarter: 2014Q4

REPORT INFORMATION
  Report Type: Spontaneous
  Country: US (occurrence: None)
  Receive Date: 20141217
  Receipt Date: 20141217
  Transmission Date: 20150529
  Serious: No
  Sender: FDA-Public Use
  Company Number: None

PATIENT
  Age: 42 Year
  Sex: Female
  Weight: 108.86 kg

DRUGS (1)
  1. SALINE FLUSH [Suspect]
     Active Substance: SODIUM CHLORIDE

REACTIONS (4)
  - Blood pressure decreased [None]
  - Cardiac arrest [None]
  - Product odour abnormal [None]
  - Dysgeusia [None]

NARRATIVE: CASE EVENT DATE: 20141013
